FAERS Safety Report 15794547 (Version 3)
Quarter: 2019Q1

REPORT INFORMATION
  Report Type: Report from Study
  Country: US (occurrence: US)
  Receive Date: 20190107
  Receipt Date: 20190228
  Transmission Date: 20190417
  Serious: Yes (Hospitalization)
  Sender: FDA-Public Use
  Company Number: US-PFIZER INC-2018364799

PATIENT
  Age: 48 Year
  Sex: Female

DRUGS (3)
  1. IBRANCE [Suspect]
     Active Substance: PALBOCICLIB
     Dosage: 75 MG, CYCLIC (DAILY- 21 ON 7 DAYS OFF)
     Route: 048
     Dates: start: 20190207
  2. IBRANCE [Suspect]
     Active Substance: PALBOCICLIB
     Indication: BREAST CANCER METASTATIC
     Dosage: 125 MG, CYCLIC (21 ON 7 OFF/21 DAYS THEN OFF FOR 7 DAYS)
     Route: 048
     Dates: start: 20180831, end: 20181019
  3. IBRANCE [Suspect]
     Active Substance: PALBOCICLIB
     Dosage: 100 MG, CYCLIC (DAILY- 21 ON 7 OFF)/(21 DAYS THEN OFF 7 DAYS)
     Route: 048
     Dates: start: 20181113, end: 201812

REACTIONS (8)
  - Nausea [Recovering/Resolving]
  - Infection [Recovering/Resolving]
  - Diarrhoea [Recovering/Resolving]
  - Red blood cell count decreased [Not Recovered/Not Resolved]
  - Diarrhoea [Unknown]
  - White blood cell count decreased [Not Recovered/Not Resolved]
  - Fatigue [Not Recovered/Not Resolved]
  - Blister [Recovered/Resolved]

NARRATIVE: CASE EVENT DATE: 2018
